FAERS Safety Report 4526226-4 (Version None)
Quarter: 2004Q4

REPORT INFORMATION
  Report Type: 
  Country: None (occurrence: None)
  Receive Date: 20041210
  Receipt Date: 20041201
  Transmission Date: 20050328
  Serious: Yes (Hospitalization)
  Sender: FDA-Public Use
  Company Number: K200401838

PATIENT
  Age: 73 Year
  Sex: Male

DRUGS (7)
  1. ALTACE [Suspect]
     Indication: ESSENTIAL HYPERTENSION
     Dosage: 5 MG, QD, ORAL
     Route: 048
     Dates: start: 20040501, end: 20040911
  2. PREVISCAN (FLUINDIONE) TABLET, 20 MG [Suspect]
     Indication: ARRHYTHMIA
     Dosage: 20 MG, QD, ORAL
     Route: 048
     Dates: start: 20040701, end: 20040911
  3. OMEPRAZOLE [Suspect]
     Dosage: 20 MG, QD, ORAL
     Route: 048
     Dates: end: 20040911
  4. ASPIRIN [Concomitant]
  5. RISPERDAL [Concomitant]
  6. DEPAKOTE [Concomitant]
  7. AMLODIPINE BESYLATE [Concomitant]

REACTIONS (2)
  - NEPHRITIS INTERSTITIAL [None]
  - OEDEMA GENITAL [None]
